FAERS Safety Report 5256465-9 (Version None)
Quarter: 2007Q1

REPORT INFORMATION
  Report Type: 
  Country: None (occurrence: None)
  Receive Date: 20070306
  Receipt Date: 20070302
  Transmission Date: 20070707
  Serious: Yes (Other)
  Sender: FDA-Public Use
  Company Number: US-GLAXOSMITHKLINE-A0640461A

PATIENT
  Age: 49 Year
  Sex: Female

DRUGS (7)
  1. LAMICTAL [Suspect]
     Route: 048
  2. NEURONTIN [Suspect]
     Route: 065
  3. MULTI-VITAMIN [Concomitant]
     Route: 048
  4. LORAZEPAM [Concomitant]
     Dosage: 3MG AT NIGHT
     Route: 048
  5. LUNESTA [Concomitant]
     Dosage: 3MG AT NIGHT
     Route: 048
  6. IBUPROFEN [Concomitant]
     Route: 048
  7. ASPIRIN [Concomitant]
     Route: 048

REACTIONS (7)
  - ERYTHEMA MULTIFORME [None]
  - GLOSSITIS [None]
  - GLOSSODYNIA [None]
  - MOUTH ULCERATION [None]
  - ORAL SOFT TISSUE DISORDER [None]
  - PAIN [None]
  - TONGUE COATED [None]
